FAERS Safety Report 15478270 (Version 1)
Quarter: 2018Q4

REPORT INFORMATION
  Report Type: Spontaneous
  Country: BR (occurrence: BR)
  Receive Date: 20181009
  Receipt Date: 20181009
  Transmission Date: 20190205
  Serious: Yes (Hospitalization, Other)
  Sender: FDA-Public Use
  Company Number: BR-JNJFOC-20181008734

PATIENT
  Age: 69 Year
  Sex: Female

DRUGS (1)
  1. DUROGESIC D-TRANS [Suspect]
     Active Substance: FENTANYL
     Indication: PAIN
     Dosage: 50MCG/H, 25MCG/H
     Route: 065

REACTIONS (3)
  - Hospitalisation [Unknown]
  - Wrong technique in product usage process [Unknown]
  - Pain [Unknown]
